FAERS Safety Report 8282256-0 (Version None)
Quarter: 2012Q2

REPORT INFORMATION
  Report Type: 
  Country: None (occurrence: None)
  Receive Date: 20120413
  Receipt Date: 20120404
  Transmission Date: 20120825
  Serious: Yes (Death, Life-Threatening, Other)
  Sender: FDA-Public Use
  Company Number: GB-TEVA-330163ISR

PATIENT
  Age: 25 Year
  Sex: Female

DRUGS (5)
  1. MIDAZOLAM [Concomitant]
     Indication: SEDATION
     Dosage: 2 MG
     Dates: start: 20111001
  2. ACTIVASE [Suspect]
     Indication: PULMONARY EMBOLISM
     Dosage: 100 MG
     Route: 042
     Dates: start: 20111001, end: 20111001
  3. MORPHINE [Concomitant]
     Indication: SEDATION
     Dosage: 2 MG
     Dates: start: 20111001
  4. PROPRANOLOL [Suspect]
     Indication: ANXIETY
     Dosage: 20 MG
     Dates: start: 20111001
  5. SUXAMETHONIUM [Concomitant]
     Dates: start: 20111001

REACTIONS (4)
  - PULSELESS ELECTRICAL ACTIVITY [None]
  - PULMONARY EMBOLISM [None]
  - CARDIAC ARREST [None]
  - PHAEOCHROMOCYTOMA [None]
